FAERS Safety Report 8157052-5 (Version None)
Quarter: 2012Q1

REPORT INFORMATION
  Report Type: 
  Country: None (occurrence: None)
  Receive Date: 20120208
  Receipt Date: 20120202
  Transmission Date: 20120608
  Serious: Yes (Other)
  Sender: FDA-Public Use
  Company Number: 2012030955

PATIENT
  Sex: Male
  Weight: 87.5442 kg

DRUGS (11)
  1. TOPAMAX [Concomitant]
  2. PRAVASTATIN [Concomitant]
  3. ACETAMINOPHEN [Concomitant]
  4. TOPROL-XL [Concomitant]
  5. ASPIRIN [Concomitant]
  6. SUDAFED 12 HOUR [Concomitant]
  7. ALLEGRA [Concomitant]
  8. HIZENTRA [Suspect]
     Indication: IMMUNODEFICIENCY COMMON VARIABLE
     Dosage: (8 G 1X/WEEK, (40 ML) 3 SITES OVER 1-2 HOURS SUBCUTANEOUS)
     Route: 058
  9. LEXAPRO [Concomitant]
  10. RANITIDINE HYDROCHLORIDE [Concomitant]
  11. PREDNISONE TAB [Concomitant]

REACTIONS (5)
  - RHINITIS [None]
  - EAR INFECTION [None]
  - EYE INFECTION [None]
  - PHARYNGITIS [None]
  - SINUSITIS [None]
